FAERS Safety Report 18764144 (Version 1)
Quarter: 2021Q1

REPORT INFORMATION
  Report Type: Spontaneous
  Country: US (occurrence: US)
  Receive Date: 20210120
  Receipt Date: 20210120
  Transmission Date: 20210419
  Serious: Yes (Other)
  Sender: FDA-Public Use
  Company Number: US-MIKART, LLC-2105600

PATIENT
  Sex: Male
  Weight: 109.09 kg

DRUGS (4)
  1. HYDROCODONE BITARTRATE AND ACETAMINOPHEN [Concomitant]
     Active Substance: ACETAMINOPHEN\HYDROCODONE BITARTRATE
     Route: 048
  2. ^SEVERAL OTHER^ UNSPECIFIED OPIOIDS [Concomitant]
  3. HYDROCODONE BITARTRATE AND ACETAMINOPHEN [Suspect]
     Active Substance: ACETAMINOPHEN\HYDROCODONE BITARTRATE
     Indication: SPINAL PAIN
     Route: 048
     Dates: start: 201406, end: 2018
  4. HYSINGLA ER [Concomitant]
     Active Substance: HYDROCODONE BITARTRATE

REACTIONS (3)
  - Blood bilirubin increased [Unknown]
  - Dependence [Not Recovered/Not Resolved]
  - Drug tolerance [Not Recovered/Not Resolved]

NARRATIVE: CASE EVENT DATE: 2017
